FAERS Safety Report 13092622 (Version 1)
Quarter: 2017Q1

REPORT INFORMATION
  Report Type: Spontaneous
  Country: US (occurrence: US)
  Receive Date: 20170105
  Receipt Date: 20170105
  Transmission Date: 20170428
  Serious: Yes (Life-Threatening, Hospitalization)
  Sender: FDA-Public Use
  Company Number: None

PATIENT
  Age: 26 Year
  Sex: Female
  Weight: 55 kg

DRUGS (3)
  1. KETOROLAC [Concomitant]
     Active Substance: KETOROLAC\KETOROLAC TROMETHAMINE
  2. DIPHENHYDRAMINE. [Concomitant]
     Active Substance: DIPHENHYDRAMINE
  3. PROCHLORPERAZIN-E [Suspect]
     Active Substance: PROCHLORPERAZINE
     Indication: MIGRAINE
     Route: 042
     Dates: start: 20161006, end: 20161006

REACTIONS (4)
  - Postpartum disorder [None]
  - Chest pain [None]
  - Seizure [None]
  - Drug hypersensitivity [None]

NARRATIVE: CASE EVENT DATE: 20161006
